FAERS Safety Report 4865742-2 (Version None)
Quarter: 2005Q4

REPORT INFORMATION
  Report Type: 
  Country: None (occurrence: None)
  Receive Date: 20051223
  Receipt Date: 20051212
  Transmission Date: 20060501
  Serious: Yes (Other)
  Sender: FDA-Public Use
  Company Number: PHBS2005AU18657

PATIENT
  Age: 64 Year
  Sex: Male

DRUGS (5)
  1. PAMIDRONATE DISODIUM [Suspect]
     Indication: MULTIPLE MYELOMA
     Dosage: 90 MG, QMO
  2. INTERFERON ALFA [Concomitant]
     Route: 065
  3. ZOLEDRONATE [Suspect]
     Indication: MULTIPLE MYELOMA
     Dosage: 4 MG, QMO
  4. DEXAMETHASONE [Concomitant]
     Dosage: 40 MG/D 4 DAYS
     Route: 065
  5. LENALIDOMIDE [Concomitant]
     Dosage: 15 MG/D

REACTIONS (14)
  - BONE DISORDER [None]
  - BONE LESION EXCISION [None]
  - EXOSTOSIS OF EXTERNAL EAR CANAL [None]
  - IMPAIRED HEALING [None]
  - MALIGNANT NEOPLASM PROGRESSION [None]
  - MOUTH ULCERATION [None]
  - OSTEONECROSIS [None]
  - PERIODONTAL DISEASE [None]
  - PRIMARY SEQUESTRUM [None]
  - SUPERINFECTION [None]
  - TOOTH EXTRACTION [None]
  - TOOTH LOSS [None]
  - ULCER [None]
  - WOUND DEBRIDEMENT [None]
